FAERS Safety Report 15708543 (Version 1)
Quarter: 2018Q4

REPORT INFORMATION
  Report Type: Report from Study
  Country: US (occurrence: US)
  Receive Date: 20181211
  Receipt Date: 20181211
  Transmission Date: 20190205
  Serious: Yes (Hospitalization, Other)
  Sender: FDA-Public Use
  Company Number: US-GILEAD-2018-0379290

PATIENT
  Age: 81 Year
  Sex: Female

DRUGS (9)
  1. ATORVASTATIN [Concomitant]
     Active Substance: ATORVASTATIN
  2. ADCIRCA [Concomitant]
     Active Substance: TADALAFIL
  3. AMBRISENTAN [Suspect]
     Active Substance: AMBRISENTAN
     Indication: LUNG DISORDER
     Dosage: 10 MG, QD
     Route: 065
  4. SPIRONOLACTONE. [Concomitant]
     Active Substance: SPIRONOLACTONE
  5. IRON [Concomitant]
     Active Substance: IRON
  6. GABAPENTIN. [Concomitant]
     Active Substance: GABAPENTIN
  7. MONTELUKAST [Concomitant]
     Active Substance: MONTELUKAST SODIUM
  8. TADALAFIL. [Suspect]
     Active Substance: TADALAFIL
     Indication: PRODUCT USED FOR UNKNOWN INDICATION
     Route: 065
  9. METOPROLOL. [Concomitant]
     Active Substance: METOPROLOL

REACTIONS (4)
  - Unevaluable event [Unknown]
  - Gastrointestinal disorder [Unknown]
  - Oxygen therapy [Unknown]
  - Pneumonia [Unknown]
